FAERS Safety Report 24794268 (Version 10)
Quarter: 2025Q1

REPORT INFORMATION
  Report Type: Spontaneous
  Country: US (occurrence: IN)
  Receive Date: 20241231
  Receipt Date: 20250305
  Transmission Date: 20250408
  Serious: Yes (Hospitalization, Other)
  Sender: IPSEN BIOPHARMACEUTICALS, INC.
  Company Number: US-SERVIER-S24016585

PATIENT
  Age: 48 Year
  Sex: Male

DRUGS (10)
  1. ONIVYDE [Suspect]
     Active Substance: IRINOTECAN HYDROCHLORIDE
     Indication: Product used for unknown indication
     Route: 065
  2. ONIVYDE [Suspect]
     Active Substance: IRINOTECAN HYDROCHLORIDE
     Route: 065
     Dates: start: 20241214
  3. ONIVYDE [Suspect]
     Active Substance: IRINOTECAN HYDROCHLORIDE
     Route: 065
     Dates: start: 20250114
  4. ONIVYDE [Suspect]
     Active Substance: IRINOTECAN HYDROCHLORIDE
     Route: 065
     Dates: start: 20250208
  5. ONIVYDE [Suspect]
     Active Substance: IRINOTECAN HYDROCHLORIDE
     Route: 065
     Dates: start: 20250222
  6. NEUKINE [Concomitant]
     Indication: Product used for unknown indication
  7. APRECAP [Concomitant]
     Indication: Product used for unknown indication
  8. PAN [Concomitant]
     Indication: Product used for unknown indication
  9. EMSET [Concomitant]
     Indication: Product used for unknown indication
  10. DOLO [Concomitant]
     Indication: Product used for unknown indication

REACTIONS (8)
  - Biliary obstruction [Unknown]
  - Device related infection [Recovered/Resolved]
  - Jaundice [Recovered/Resolved]
  - Liver function test increased [Recovered/Resolved]
  - Pyrexia [Recovered/Resolved]
  - Full blood count decreased [Recovered/Resolved]
  - Pyrexia [Recovered/Resolved]
  - Viral infection [Recovered/Resolved]

NARRATIVE: CASE EVENT DATE: 20241128
